FAERS Safety Report 7211478-2 (Version None)
Quarter: 2011Q1

REPORT INFORMATION
  Report Type: 
  Country: None (occurrence: None)
  Receive Date: 20110105
  Receipt Date: 20101230
  Transmission Date: 20110831
  Serious: Yes (Death, Hospitalization)
  Sender: FDA-Public Use
  Company Number: PHHY2010FR89712

PATIENT
  Sex: Male

DRUGS (16)
  1. NIZORAL [Concomitant]
     Dosage: UNK
     Dates: start: 20100801, end: 20100818
  2. SOLU-MEDROL [Concomitant]
     Dosage: 100 MG, QD
     Dates: start: 20100801, end: 20100818
  3. LASIX [Concomitant]
     Dosage: UNK
     Dates: start: 20100801, end: 20100818
  4. CYTARABINE [Concomitant]
     Dosage: UNK
     Dates: start: 20100818
  5. ZOPHREN [Concomitant]
     Dosage: UNK
     Dates: start: 20100819
  6. TAZOCILLINE [Concomitant]
     Dosage: UNK
     Dates: start: 20100801, end: 20100818
  7. VINCRISTINE [Concomitant]
     Dosage: UNK
     Dates: start: 20100819
  8. CONTRAMAL [Concomitant]
     Dosage: UNK
     Dates: start: 20100822
  9. HEPARIN [Concomitant]
     Dosage: UNK
     Dates: start: 20100801, end: 20100818
  10. NEXIUM [Concomitant]
     Dosage: UNK
     Dates: start: 20100801, end: 20100818
  11. PLITICAN [Concomitant]
     Dosage: UNK
     Dates: start: 20100819
  12. ENDOXAN [Concomitant]
     Dosage: UNK
     Dates: start: 20100819
  13. GLEEVEC [Suspect]
     Dosage: 400 MG, BID
     Route: 048
     Dates: start: 20100817, end: 20100823
  14. TRIFLUCAN [Concomitant]
     Dosage: UNK
     Dates: start: 20100801, end: 20100818
  15. DOXORUBICIN HCL [Concomitant]
     Dosage: UNK
     Dates: start: 20100819
  16. IMIPENEM AND CILASTATIN [Concomitant]
     Dosage: UNK
     Dates: start: 20100822

REACTIONS (9)
  - GENERAL PHYSICAL HEALTH DETERIORATION [None]
  - MULTI-ORGAN FAILURE [None]
  - FEBRILE NEUTROPENIA [None]
  - CELLULITIS [None]
  - RHABDOMYOLYSIS [None]
  - TINNITUS [None]
  - SEPTIC SHOCK [None]
  - MYALGIA [None]
  - HYPERLACTACIDAEMIA [None]
